FAERS Safety Report 14070322 (Version 5)
Quarter: 2018Q2

REPORT INFORMATION
  Report Type: Spontaneous
  Country: US (occurrence: US)
  Receive Date: 20171011
  Receipt Date: 20180427
  Transmission Date: 20180711
  Serious: Yes (Death)
  Sender: FDA-Public Use
  Company Number: US-ROCHE-2005443

PATIENT
  Sex: Male

DRUGS (21)
  1. RITUXAN [Suspect]
     Active Substance: RITUXIMAB
     Route: 042
     Dates: start: 20050606
  2. RITUXAN [Suspect]
     Active Substance: RITUXIMAB
     Route: 042
     Dates: start: 20041020
  3. RITUXAN [Suspect]
     Active Substance: RITUXIMAB
     Route: 042
     Dates: start: 20051018
  4. TAGAMET [Concomitant]
     Active Substance: CIMETIDINE
     Dosage: ALSO RECEIVED ON 20/OCT/2004, 27/OCT/2004, 03/NOV/2004, 03/JAN/2005, 31/JAN/2005, 06/JUN/2005, 05/JU
     Route: 042
     Dates: start: 20060119
  5. LIPITOR [Concomitant]
     Active Substance: ATORVASTATIN CALCIUM
  6. RITUXAN [Suspect]
     Active Substance: RITUXIMAB
     Route: 042
     Dates: start: 20050802
  7. RITUXAN [Suspect]
     Active Substance: RITUXIMAB
     Route: 042
     Dates: start: 20050103
  8. METOPROLOL. [Concomitant]
     Active Substance: METOPROLOL
  9. ASPIRIN. [Concomitant]
     Active Substance: ASPIRIN
  10. RITUXAN [Suspect]
     Active Substance: RITUXIMAB
     Indication: CHRONIC LYMPHOCYTIC LEUKAEMIA
     Dosage: LAST DOSE ON 12/APR/2006
     Route: 042
     Dates: start: 20060119
  11. RITUXAN [Suspect]
     Active Substance: RITUXIMAB
     Route: 042
     Dates: start: 20050927
  12. DECADRON [Concomitant]
     Active Substance: DEXAMETHASONE
     Dosage: ALSO RECEIVED ON 20/OCT/2004, 27/OCT/2004, 03/NOV/2004, 03/JAN/2005, 31/JAN/2005, 06/JUN/2005, 05/JU
     Route: 042
     Dates: start: 20060119
  13. RITUXAN [Suspect]
     Active Substance: RITUXIMAB
     Route: 042
     Dates: start: 20051122
  14. RITUXAN [Suspect]
     Active Substance: RITUXIMAB
     Route: 042
     Dates: start: 20050830
  15. RITUXAN [Suspect]
     Active Substance: RITUXIMAB
     Route: 042
     Dates: start: 20050131
  16. RITUXAN [Suspect]
     Active Substance: RITUXIMAB
     Route: 042
     Dates: start: 20041027
  17. KYTRIL [Concomitant]
     Active Substance: GRANISETRON HYDROCHLORIDE
     Dosage: ALSO RECEIVED ON 20/OCT/2004, 27/OCT/2004, 03/NOV/2004, 03/JAN/2005, 31/JAN/2005, 06/JUN/2005, 05/JU
     Route: 042
     Dates: start: 20060119
  18. ALLOPURINOL. [Concomitant]
     Active Substance: ALLOPURINOL
  19. RITUXAN [Suspect]
     Active Substance: RITUXIMAB
     Route: 042
     Dates: start: 20050705
  20. RITUXAN [Suspect]
     Active Substance: RITUXIMAB
     Route: 042
     Dates: start: 20041103
  21. TYLENOL [Concomitant]
     Active Substance: ACETAMINOPHEN

REACTIONS (1)
  - Progressive multifocal leukoencephalopathy [Fatal]
